FAERS Safety Report 16997688 (Version 1)
Quarter: 2019Q4

REPORT INFORMATION
  Report Type: Spontaneous
  Country: US (occurrence: US)
  Receive Date: 20191106
  Receipt Date: 20191106
  Transmission Date: 20200122
  Serious: No
  Sender: FDA-Public Use
  Company Number: US-TEVA-2019-US-1109976

PATIENT
  Sex: Female

DRUGS (4)
  1. VITAMIN D2 [Concomitant]
     Active Substance: ERGOCALCIFEROL
     Dates: start: 201909
  2. KLONOPIN [Concomitant]
     Active Substance: CLONAZEPAM
     Indication: ANXIETY
  3. MAGNESIUM [Concomitant]
     Active Substance: MAGNESIUM
     Dates: start: 201909
  4. AJOVY [Suspect]
     Active Substance: FREMANEZUMAB-VFRM
     Indication: MIGRAINE
     Dosage: 225MG MONTHLY; SHE HAS RECEIVED 4 INJECTIONS, LAST INJECTION ON 14-AUG-2019 (4TH)
     Dates: start: 2019

REACTIONS (3)
  - Inappropriate schedule of product administration [Unknown]
  - Product storage error [Unknown]
  - Drug ineffective [Unknown]
